FAERS Safety Report 16119586 (Version 1)
Quarter: 2019Q1

REPORT INFORMATION
  Report Type: Spontaneous
  Country: US (occurrence: US)
  Receive Date: 20190326
  Receipt Date: 20190326
  Transmission Date: 20190418
  Serious: Yes (Hospitalization)
  Sender: FDA-Public Use
  Company Number: PHHY2019US060111

PATIENT
  Age: 81 Year
  Sex: Male

DRUGS (2)
  1. BUDESONIDE. [Suspect]
     Active Substance: BUDESONIDE
     Indication: DIARRHOEA
     Dosage: 9 MG, QD
     Route: 065
  2. PREDNISONE. [Suspect]
     Active Substance: PREDNISONE
     Indication: DIARRHOEA
     Dosage: 80 MG, QD
     Route: 065

REACTIONS (3)
  - Diarrhoea [Unknown]
  - Product use in unapproved indication [Unknown]
  - Hypovolaemia [Unknown]
